FAERS Safety Report 9376556 (Version 1)
Quarter: 2013Q2

REPORT INFORMATION
  Report Type: Spontaneous
  Country: US (occurrence: None)
  Receive Date: 20130628
  Receipt Date: 20130628
  Transmission Date: 20140414
  Serious: Yes (Other)
  Sender: FDA-Public Use
  Company Number: None

PATIENT
  Age: 31 Year
  Sex: Male
  Weight: 85.28 kg

DRUGS (1)
  1. SULFAMETHOXAZOLE [Suspect]
     Indication: PROSTATITIS
     Route: 048
     Dates: start: 20130422, end: 20130430

REACTIONS (4)
  - Stevens-Johnson syndrome [None]
  - Fatigue [None]
  - Dyspnoea [None]
  - Impaired work ability [None]
